FAERS Safety Report 10039349 (Version 3)
Quarter: 2014Q4

REPORT INFORMATION
  Report Type: Spontaneous
  Country: US (occurrence: None)
  Receive Date: 20140318
  Receipt Date: 20141222
  Transmission Date: 20150528
  Serious: No
  Sender: FDA-Public Use
  Company Number: 2013CT000121

PATIENT
  Age: 27 Year
  Sex: Female

DRUGS (10)
  1. RED YEAST RICE [Concomitant]
     Active Substance: DIETARY SUPPLEMENT
  2. LISINOPRIL. [Concomitant]
     Active Substance: LISINOPRIL
  3. LANTUS [Concomitant]
     Active Substance: INSULIN GLARGINE
  4. KORLYM [Suspect]
     Active Substance: MIFEPRISTONE
     Indication: CUSHING^S SYNDROME
     Route: 048
     Dates: start: 201312, end: 201312
  5. POTASSIUM CITRATE. [Concomitant]
     Active Substance: POTASSIUM CITRATE
  6. METFORMIN [Concomitant]
     Active Substance: METFORMIN HYDROCHLORIDE
  7. KRILL OIL [Concomitant]
     Active Substance: DIETARY SUPPLEMENT
  8. CO Q10 [Concomitant]
  9. SYNTHROID [Concomitant]
     Active Substance: LEVOTHYROXINE SODIUM
  10. VITAMIN D [Concomitant]
     Active Substance: CHOLECALCIFEROL

REACTIONS (19)
  - Insomnia [None]
  - Nocturia [None]
  - Endometrial hypertrophy [None]
  - Incorrect dosage administered [None]
  - Weight decreased [None]
  - Restless legs syndrome [None]
  - Vaginal haemorrhage [None]
  - Hot flush [None]
  - Somnolence [None]
  - Dysgeusia [None]
  - Glycosylated haemoglobin decreased [None]
  - Dizziness [None]
  - Hypotension [None]
  - Myalgia [None]
  - Decreased appetite [None]
  - Fatigue [None]
  - Nausea [None]
  - Hepatic enzyme increased [None]
  - Blood glucose decreased [None]

NARRATIVE: CASE EVENT DATE: 20131221
